FAERS Safety Report 24156457 (Version 5)
Quarter: 2024Q4

REPORT INFORMATION
  Report Type: Spontaneous
  Country: BR (occurrence: BR)
  Receive Date: 20240731
  Receipt Date: 20241017
  Transmission Date: 20250115
  Serious: Yes (Hospitalization)
  Sender: TORRENT PHARMA INC.
  Company Number: BR-TORRENT-00006235

PATIENT
  Age: 63 Year
  Sex: Female
  Weight: 78 kg

DRUGS (6)
  1. NEBIVOLOL [Suspect]
     Active Substance: NEBIVOLOL
     Indication: Cardiac disorder
     Dosage: UNKNOWN
     Route: 048
  2. VENLAFAXINE HYDROCHLORIDE [Suspect]
     Active Substance: VENLAFAXINE HYDROCHLORIDE
     Indication: Depression
     Dosage: FOR 10 YEARS, 1 TABLET IN THE MORNING
     Route: 048
     Dates: start: 2014
  3. DEPAKOTE [Concomitant]
     Active Substance: DIVALPROEX SODIUM
     Indication: Product used for unknown indication
     Dosage: UNKNOWN
     Route: 065
  4. PREGABALIN [Concomitant]
     Active Substance: PREGABALIN
     Indication: Product used for unknown indication
     Dosage: UNKNOWN
     Route: 065
     Dates: end: 202409
  5. DULOXETINE HYDROCHLORIDE [Concomitant]
     Active Substance: DULOXETINE HYDROCHLORIDE
     Indication: Product used for unknown indication
     Dosage: UNKNOWN
     Route: 065
  6. MORPHINE [Concomitant]
     Active Substance: MORPHINE
     Indication: Fibromyalgia
     Dosage: UNKNOWN
     Route: 065

REACTIONS (15)
  - Nasopharyngitis [Not Recovered/Not Resolved]
  - Hospitalisation [Recovered/Resolved]
  - Poor quality product administered [Unknown]
  - Cough [Not Recovered/Not Resolved]
  - Off label use [Unknown]
  - Lung disorder [Not Recovered/Not Resolved]
  - Tooth fracture [Not Recovered/Not Resolved]
  - Pain in extremity [Unknown]
  - Foot fracture [Unknown]
  - Surgery [Recovering/Resolving]
  - Pain [Not Recovered/Not Resolved]
  - Feeling cold [Not Recovered/Not Resolved]
  - Dyspnoea [Not Recovered/Not Resolved]
  - Gait disturbance [Not Recovered/Not Resolved]
  - Urinary incontinence [Unknown]

NARRATIVE: CASE EVENT DATE: 20140101
